FAERS Safety Report 5336110-4 (Version None)
Quarter: 2007Q2

REPORT INFORMATION
  Report Type: 
  Country: None (occurrence: None)
  Receive Date: 20070302
  Receipt Date: 20061027
  Transmission Date: 20071010
  Serious: No
  Sender: FDA-Public Use
  Company Number: PHEH2006US13572

PATIENT
  Sex: Female

DRUGS (1)
  1. ENABLEX [Suspect]
     Dosage: ORAL
     Route: 048
     Dates: start: 20060905

REACTIONS (4)
  - DRY EYE [None]
  - DRY MOUTH [None]
  - DRY THROAT [None]
  - SLEEP DISORDER [None]
